FAERS Safety Report 17852310 (Version 1)
Quarter: 2020Q2

REPORT INFORMATION
  Report Type: Spontaneous
  Country: AT (occurrence: AT)
  Receive Date: 20200602
  Receipt Date: 20200602
  Transmission Date: 20200714
  Serious: Yes (Other)
  Sender: FDA-Public Use
  Company Number: AT-ELI_LILLY_AND_COMPANY-AT202005009728

PATIENT
  Age: 71 Year
  Sex: Male
  Weight: 74 kg

DRUGS (1)
  1. RAMUCIRUMAB [Suspect]
     Active Substance: RAMUCIRUMAB
     Indication: HEPATOCELLULAR CARCINOMA
     Dosage: UNK, CYCLICAL
     Route: 065
     Dates: start: 20200213

REACTIONS (4)
  - Peritonitis bacterial [Unknown]
  - Pruritus [Unknown]
  - Hypothyroidism [Unknown]
  - Decreased appetite [Unknown]
